FAERS Safety Report 8304640-9 (Version None)
Quarter: 2012Q2

REPORT INFORMATION
  Report Type: 
  Country: None (occurrence: None)
  Receive Date: 20120423
  Receipt Date: 20120416
  Transmission Date: 20120825
  Serious: No
  Sender: FDA-Public Use
  Company Number: US-PFIZER INC-2012010020

PATIENT
  Sex: Female
  Weight: 68.027 kg

DRUGS (7)
  1. ADVAIR DISKUS 100/50 [Concomitant]
     Indication: ASTHMA
     Dosage: 500/50 UG
  2. SPIRIVA [Concomitant]
     Indication: ASTHMA
     Dosage: 18 UG, UNK
  3. NEURONTIN [Suspect]
     Dosage: 600 MG, 3X/DAY
     Route: 048
     Dates: start: 20120101
  4. ALBUTEROL [Concomitant]
     Indication: ASTHMA
     Dosage: UNK
  5. LYRICA [Suspect]
     Indication: NERVE INJURY
     Dosage: 100 MG, 3X/DAY
     Route: 048
     Dates: start: 20090801, end: 20120101
  6. SINGULAIR [Concomitant]
     Indication: ASTHMA
     Dosage: UNK
  7. NEURONTIN [Suspect]
     Indication: NERVE INJURY
     Dosage: 600 MG, 3X/DAY
     Route: 048
     Dates: start: 20090201, end: 20090201

REACTIONS (5)
  - THINKING ABNORMAL [None]
  - SOMNOLENCE [None]
  - MALAISE [None]
  - DIZZINESS [None]
  - GASTRIC DISORDER [None]
